FAERS Safety Report 8428747-0 (Version None)
Quarter: 2012Q2

REPORT INFORMATION
  Report Type: 
  Country: None (occurrence: None)
  Receive Date: 20120606
  Receipt Date: 20120522
  Transmission Date: 20120825
  Serious: Yes (Other)
  Sender: FDA-Public Use
  Company Number: 2012-2187

PATIENT
  Age: 23 Year
  Sex: Male
  Weight: 57 kg

DRUGS (4)
  1. CARBATROL [Concomitant]
  2. SOMATULINE DEPOT [Suspect]
     Indication: HYPOGLYCAEMIA
     Dosage: 120 MG, ONCE EVERY 30 TO 35 DAYS (120 MG, ONCE EVERY 30 TO 35 DAYS), SUBCUTANEOUS
     Route: 058
     Dates: start: 20100201
  3. SOMATULINE DEPOT [Suspect]
     Indication: OFF LABEL USE
     Dosage: 120 MG, ONCE EVERY 30 TO 35 DAYS (120 MG, ONCE EVERY 30 TO 35 DAYS), SUBCUTANEOUS
     Route: 058
     Dates: start: 20100201
  4. ERGOCALCIFEROL [Concomitant]

REACTIONS (10)
  - DYSPHEMIA [None]
  - DISTURBANCE IN ATTENTION [None]
  - OFF LABEL USE [None]
  - ABNORMAL BEHAVIOUR [None]
  - INJECTION SITE HAEMORRHAGE [None]
  - BLOOD GLUCOSE DECREASED [None]
  - CONFUSIONAL STATE [None]
  - CONVULSION [None]
  - FLAT AFFECT [None]
  - HAEMORRHAGE [None]
